FAERS Safety Report 25090422 (Version 1)
Quarter: 2025Q1

REPORT INFORMATION
  Report Type: Spontaneous
  Country: GB (occurrence: GB)
  Receive Date: 20250318
  Receipt Date: 20250318
  Transmission Date: 20250408
  Serious: Yes (Other)
  Sender: GLAXOSMITHKLINE
  Company Number: None

PATIENT

DRUGS (9)
  1. DUAC [Suspect]
     Active Substance: BENZOYL PEROXIDE\CLINDAMYCIN PHOSPHATE
     Indication: Ill-defined disorder
     Dosage: UNK UNK, QD (GEL 5% AND 1% ONCE DAILY)
     Route: 065
     Dates: start: 20230824
  2. BETNOVATE [Concomitant]
     Active Substance: BETAMETHASONE
     Indication: Ill-defined disorder
     Route: 065
     Dates: start: 20250305
  3. EPIPEN [Concomitant]
     Active Substance: EPINEPHRINE
     Indication: Ill-defined disorder
     Route: 065
     Dates: start: 20210310
  4. Dermax [Concomitant]
     Indication: Ill-defined disorder
     Route: 065
     Dates: start: 20240926
  5. AZELAIC ACID [Concomitant]
     Active Substance: AZELAIC ACID
     Indication: Ill-defined disorder
     Dosage: 1 DF, QD (APPLY ONCE DAILY IN THE EVENING)
     Route: 065
     Dates: start: 20240926
  6. AZELAIC ACID [Concomitant]
     Active Substance: AZELAIC ACID
     Indication: Sensitive skin
  7. Cetraben [Concomitant]
     Indication: Ill-defined disorder
     Route: 065
     Dates: start: 20240926
  8. MOMETASONE [Concomitant]
     Active Substance: MOMETASONE
     Indication: Ill-defined disorder
     Dosage: UNK, QD (APPLY DAILY)
     Route: 065
     Dates: start: 20240926
  9. CLINDAMYCIN PHOSPHATE\TRETINOIN [Concomitant]
     Active Substance: CLINDAMYCIN PHOSPHATE\TRETINOIN
     Indication: Ill-defined disorder
     Dosage: UNK, QD (APPLY AT NIGHT)
     Route: 065
     Dates: start: 20240926, end: 20250305

REACTIONS (1)
  - Angioedema [Recovered/Resolved]
